FAERS Safety Report 23623587 (Version 2)
Quarter: 2024Q1

REPORT INFORMATION
  Report Type: Spontaneous
  Country: BR (occurrence: BR)
  Receive Date: 20240312
  Receipt Date: 20240318
  Transmission Date: 20240409
  Serious: No
  Sender: FDA-Public Use
  Company Number: BR-PFIZER INC-PV202400032235

PATIENT
  Age: 56 Year
  Sex: Female

DRUGS (10)
  1. TALIGLUCERASE ALFA [Suspect]
     Active Substance: TALIGLUCERASE ALFA
     Indication: Gaucher^s disease
     Dosage: UNK
     Route: 042
     Dates: start: 2022
  2. OMEPRAZOLE [Concomitant]
     Active Substance: OMEPRAZOLE
     Dosage: UNK
  3. NIMESULIDE [Concomitant]
     Active Substance: NIMESULIDE
     Dosage: UNK
  4. PREDNISOLONE ACETATE [Concomitant]
     Active Substance: PREDNISOLONE ACETATE
     Dosage: UNK
  5. ALENDRONATE [Concomitant]
     Active Substance: ALENDRONATE SODIUM
     Dosage: UNK
  6. CHOLECALCIFEROL [Concomitant]
     Active Substance: CHOLECALCIFEROL
     Dosage: UNK
  7. CLOBAZAM [Concomitant]
     Active Substance: CLOBAZAM
     Dosage: UNK
  8. CALCIUM [Concomitant]
     Active Substance: CALCIUM
     Dosage: UNK
  9. TERIPARATIDE [Concomitant]
     Active Substance: TERIPARATIDE
     Dosage: UNK
     Dates: start: 2022, end: 2024
  10. PREGABALIN [Concomitant]
     Active Substance: PREGABALIN
     Indication: Pain
     Dosage: UNK, IN THE 2020S

REACTIONS (4)
  - Infusion related reaction [Recovered/Resolved]
  - Headache [Recovered/Resolved]
  - Pyrexia [Recovered/Resolved]
  - Blood pressure increased [Recovered/Resolved]

NARRATIVE: CASE EVENT DATE: 20220101
